FAERS Safety Report 6677245-3 (Version None)
Quarter: 2010Q2

REPORT INFORMATION
  Report Type: 
  Country: None (occurrence: None)
  Receive Date: 20100408
  Receipt Date: 20100408
  Transmission Date: 20101027
  Serious: No
  Sender: FDA-Public Use
  Company Number: None

PATIENT
  Age: 58 Year
  Weight: 79 kg

DRUGS (8)
  1. LEVAQUIN [Suspect]
     Indication: PNEUMONIA
     Dosage: 750 MG Q24 IV X1
     Route: 042
     Dates: start: 20100130
  2. CLINDAMYCIN [Concomitant]
  3. TAMIFLU [Concomitant]
  4. ALBUTEROL [Concomitant]
  5. TYLENOL-500 [Concomitant]
  6. ZOFRAN [Concomitant]
  7. BENICAR [Concomitant]
  8. ZITHROMAX [Concomitant]

REACTIONS (2)
  - ERYTHEMA [None]
  - INFUSION RELATED REACTION [None]
